FAERS Safety Report 12374846 (Version 2)
Quarter: 2016Q2

REPORT INFORMATION
  Report Type: Spontaneous
  Country: ES (occurrence: ES)
  Receive Date: 20160517
  Receipt Date: 20160601
  Transmission Date: 20160815
  Serious: Yes (Death, Life-Threatening, Other)
  Sender: FDA-Public Use
  Company Number: ES-AUROBINDO-AUR-APL-2016-06137

PATIENT
  Weight: .75 kg

DRUGS (2)
  1. IBUPROFEN. [Suspect]
     Active Substance: IBUPROFEN
     Indication: PATENT DUCTUS ARTERIOSUS
     Dosage: 10 MG/KG, 10 MG/KG BODY WEIGHT FIRST DOSE
     Route: 065
  2. IBUPROFEN. [Suspect]
     Active Substance: IBUPROFEN
     Dosage: 5 MG/KG, 2 DOSES OF 5 MG/KG GIVEN 24 HOURS APART
     Route: 065

REACTIONS (5)
  - Delayed myelination [Unknown]
  - Retinopathy congenital [Unknown]
  - Bronchopulmonary dysplasia [Fatal]
  - Pulmonary hypertension [Recovered/Resolved]
  - Cerebral atrophy [Unknown]
